FAERS Safety Report 5699536-5 (Version None)
Quarter: 2008Q2

REPORT INFORMATION
  Report Type: 
  Country: None (occurrence: None)
  Receive Date: 20080408
  Receipt Date: 20080408
  Transmission Date: 20081010
  Serious: No
  Sender: FDA-Public Use
  Company Number: None

PATIENT
  Age: 92 Year
  Sex: Female

DRUGS (1)
  1. OXYCONTIN [Suspect]
     Dosage: TABLET

REACTIONS (9)
  - INCORRECT DOSE ADMINISTERED [None]
  - MEDICATION ERROR [None]
  - MEMORY IMPAIRMENT [None]
  - MOTOR DYSFUNCTION [None]
  - NERVOUS SYSTEM DISORDER [None]
  - OESOPHAGEAL INJURY [None]
  - OVERDOSE [None]
  - RESPIRATORY DISTRESS [None]
  - VOCAL CORD DISORDER [None]
